FAERS Safety Report 9430125 (Version 1)
Quarter: 2013Q3

REPORT INFORMATION
  Report Type: Report from Study
  Country: NL (occurrence: NL)
  Receive Date: 20130730
  Receipt Date: 20130730
  Transmission Date: 20140515
  Serious: Yes (Other)
  Sender: FDA-Public Use
  Company Number: NL-JNJFOC-20130712855

PATIENT
  Age: 58 Year
  Sex: Male
  Weight: 60 kg

DRUGS (4)
  1. INFLIXIMAB, RECOMBINANT [Suspect]
     Indication: RHEUMATOID ARTHRITIS
     Route: 042
     Dates: start: 20010906, end: 20020715
  2. METHOTREXATE [Suspect]
     Indication: RHEUMATOID ARTHRITIS
     Route: 065
  3. FOLIC ACID [Concomitant]
     Route: 065
  4. ENALAPRIL [Concomitant]
     Indication: BLOOD PRESSURE
     Route: 065

REACTIONS (1)
  - Skin cancer [Recovered/Resolved]
